FAERS Safety Report 4332792-4 (Version None)
Quarter: 2004Q1

REPORT INFORMATION
  Report Type: 
  Country: None (occurrence: None)
  Receive Date: 20040330
  Receipt Date: 20040315
  Transmission Date: 20041129
  Serious: No
  Sender: FDA-Public Use
  Company Number: 2004-113819-NL

PATIENT
  Age: 38 Year
  Sex: Female

DRUGS (3)
  1. MIRTAZAPINE [Suspect]
     Indication: DEPRESSION
     Dosage: 30 MG
     Route: 048
     Dates: end: 20040209
  2. MIRTAZAPINE [Suspect]
     Indication: INSOMNIA
     Dosage: 30 MG
     Route: 048
     Dates: end: 20040209
  3. GABAPENTIN [Concomitant]

REACTIONS (2)
  - DYSKINESIA [None]
  - DYSTONIA [None]
